FAERS Safety Report 14094403 (Version 3)
Quarter: 2018Q1

REPORT INFORMATION
  Report Type: Spontaneous
  Country: US (occurrence: US)
  Receive Date: 20171016
  Receipt Date: 20180221
  Transmission Date: 20180508
  Serious: No
  Sender: FDA-Public Use
  Company Number: US-MYLANLABS-2017M1057900

PATIENT
  Sex: Male
  Weight: 81 kg

DRUGS (2)
  1. TRETINOIN. [Suspect]
     Active Substance: TRETINOIN
     Indication: RASH
     Dosage: UNK UNK, BID
     Route: 061
     Dates: start: 20170616
  2. TRETINOIN. [Suspect]
     Active Substance: TRETINOIN
     Indication: SKIN IRRITATION

REACTIONS (2)
  - No adverse event [Unknown]
  - Drug ineffective [Unknown]
